FAERS Safety Report 9836736 (Version 3)
Quarter: 2014Q1

REPORT INFORMATION
  Report Type: Report from Study
  Country: DE (occurrence: DE)
  Receive Date: 20140123
  Receipt Date: 20140128
  Transmission Date: 20141002
  Serious: No
  Sender: FDA-Public Use
  Company Number: PHHY2013DE059474

PATIENT
  Sex: Male

DRUGS (13)
  1. AMN107 [Suspect]
     Indication: CHRONIC MYELOID LEUKAEMIA
     Dosage: 600 MG, PER DAY
     Route: 048
     Dates: start: 20110915
  2. BISOPROLOL [Concomitant]
     Dosage: 15 MG, UNK
  3. MARCUMAR [Concomitant]
  4. RAMIPRIL [Concomitant]
     Dosage: 25 MG, UNK
  5. LITALIR [Concomitant]
     Dosage: 1 DF, TID
     Dates: start: 20110830, end: 20110914
  6. ALLOPURINOL [Concomitant]
     Dosage: 300 MG, UNK
     Dates: start: 20110830
  7. POTASSIUM TABLETS EFFERVESCENT [Concomitant]
     Dates: start: 20110825, end: 20110921
  8. DIGIMERCK [Concomitant]
     Dosage: 0.007 MG, UNK
     Dates: start: 20110922
  9. TAMSULOSIN [Concomitant]
     Dosage: 0.4 MG, UNK
     Dates: start: 20111018
  10. ASS [Concomitant]
     Dosage: 100 MG, UNK
     Dates: start: 20130724, end: 20130824
  11. CLOPRA//CLOPIDOGREL BISULFATE [Concomitant]
     Dosage: 75 MG, UNK
     Dates: start: 20130724
  12. ATORVASTATIN [Concomitant]
     Dosage: 40 MG, UNK
     Dates: start: 20130724
  13. BISOPROLOL [Concomitant]
     Dosage: 2.5 MG, UNK
     Dates: start: 20130724

REACTIONS (1)
  - Benign prostatic hyperplasia [Not Recovered/Not Resolved]
